FAERS Safety Report 8615429-5 (Version None)
Quarter: 2012Q3

REPORT INFORMATION
  Report Type: 
  Country: None (occurrence: None)
  Receive Date: 20120823
  Receipt Date: 20120814
  Transmission Date: 20120928
  Serious: Yes (Other)
  Sender: FDA-Public Use
  Company Number: CA-JNJFOC-20120710687

PATIENT
  Sex: Female
  Weight: 51.3 kg

DRUGS (6)
  1. MELOXICAM [Concomitant]
     Route: 065
  2. REMICADE [Suspect]
     Indication: PSORIATIC ARTHROPATHY
     Route: 042
     Dates: start: 20111017
  3. METHOTREXATE [Concomitant]
     Route: 065
  4. REMICADE [Suspect]
     Route: 042
     Dates: start: 20111031, end: 20120716
  5. FOLIC ACID [Concomitant]
     Route: 065
  6. ESTRACE [Concomitant]
     Route: 065

REACTIONS (4)
  - CHEST DISCOMFORT [None]
  - PHARYNGEAL OEDEMA [None]
  - RESPIRATORY FAILURE [None]
  - FATIGUE [None]
